FAERS Safety Report 6082652-6 (Version None)
Quarter: 2009Q1

REPORT INFORMATION
  Report Type: 
  Country: None (occurrence: None)
  Receive Date: 20090218
  Receipt Date: 20090210
  Transmission Date: 20090719
  Serious: Yes (Other)
  Sender: FDA-Public Use
  Company Number: US-BAYER-200910348BCC

PATIENT
  Age: 76 Year
  Sex: Male
  Weight: 61 kg

DRUGS (5)
  1. ALEVE [Suspect]
     Indication: ANALGESIA
     Dates: start: 19980101
  2. CAFFEINE [Concomitant]
  3. ONE A DAY MENS [Concomitant]
  4. LISINOPRIL [Concomitant]
  5. WAL-MART 81 MG ASPIRIN [Concomitant]

REACTIONS (4)
  - DIZZINESS [None]
  - FALL [None]
  - HYPOTENSION [None]
  - SYNCOPE [None]
